FAERS Safety Report 6465535-9 (Version None)
Quarter: 2009Q4

REPORT INFORMATION
  Report Type: 
  Country: None (occurrence: None)
  Receive Date: 20091119
  Receipt Date: 20090923
  Transmission Date: 20100525
  Serious: No
  Sender: FDA-Public Use
  Company Number: WAES 0909USA03724

PATIENT
  Age: 28 Year
  Sex: Male

DRUGS (4)
  1. JANUVIA [Suspect]
     Indication: TYPE 2 DIABETES MELLITUS
     Dosage: PO
     Route: 048
     Dates: start: 20090826
  2. LIPITOR [Concomitant]
  3. COUGH, COLD, AND FLU THERAPIES [Concomitant]
  4. METFORMIN HCL [Concomitant]

REACTIONS (2)
  - RHINITIS [None]
  - WEIGHT DECREASED [None]
